FAERS Safety Report 6938291-5 (Version None)
Quarter: 2010Q3

REPORT INFORMATION
  Report Type: 
  Country: None (occurrence: None)
  Receive Date: 20100824
  Receipt Date: 20100812
  Transmission Date: 20110219
  Serious: Yes (Other)
  Sender: FDA-Public Use
  Company Number: US-PFIZER INC-2010073521

PATIENT
  Sex: Male

DRUGS (7)
  1. CHANTIX [Suspect]
     Indication: SMOKING CESSATION THERAPY
     Dosage: STARTER PACK
     Dates: start: 20080801, end: 20080901
  2. ULTRAM [Concomitant]
     Indication: BACK PAIN
     Dosage: UNK
     Dates: start: 19880101, end: 20081101
  3. VALIUM [Concomitant]
     Indication: ANXIETY
     Dosage: UNK
     Dates: start: 19880101, end: 20090501
  4. VALIUM [Concomitant]
     Indication: PANIC ATTACK
  5. VALIUM [Concomitant]
     Indication: MUSCLE SPASMS
  6. IBUPROFEN [Concomitant]
     Indication: BACK PAIN
     Dosage: UNK
     Dates: start: 20050101
  7. PRILOSEC [Concomitant]
     Indication: GASTROOESOPHAGEAL REFLUX DISEASE
     Dosage: UNK
     Dates: start: 20040101, end: 20080901

REACTIONS (10)
  - AGGRESSION [None]
  - AGORAPHOBIA [None]
  - ANXIETY [None]
  - CONFUSIONAL STATE [None]
  - DEPRESSION [None]
  - DISORIENTATION [None]
  - HALLUCINATION, AUDITORY [None]
  - PANIC ATTACK [None]
  - SUICIDAL IDEATION [None]
  - THINKING ABNORMAL [None]
